FAERS Safety Report 12531050 (Version 1)
Quarter: 2016Q3

REPORT INFORMATION
  Report Type: Spontaneous
  Country: US (occurrence: None)
  Receive Date: 20160705
  Receipt Date: 20160705
  Transmission Date: 20161109
  Serious: Yes (Hospitalization)
  Sender: FDA-Public Use
  Company Number: None

PATIENT
  Age: 18 Year
  Sex: Female
  Weight: 44 kg

DRUGS (1)
  1. ONCASPAR [Suspect]
     Active Substance: PEGASPARGASE
     Dates: end: 20160606

REACTIONS (6)
  - Hypotension [None]
  - Pancreatitis acute [None]
  - Abdominal pain upper [None]
  - Intestinal mucosal hypertrophy [None]
  - Unresponsive to stimuli [None]
  - Abdominal distension [None]

NARRATIVE: CASE EVENT DATE: 20160617
